FAERS Safety Report 23543134 (Version 3)
Quarter: 2024Q3

REPORT INFORMATION
  Report Type: Spontaneous
  Country: CA (occurrence: CA)
  Receive Date: 20240220
  Receipt Date: 20240920
  Transmission Date: 20241017
  Serious: Yes (Other)
  Sender: TEVA
  Company Number: CA-TEVA-VS-3158373

PATIENT
  Age: 28 Year
  Sex: Female

DRUGS (4)
  1. METFORMIN [Suspect]
     Active Substance: METFORMIN HYDROCHLORIDE
     Indication: Metabolic syndrome
     Route: 065
  2. METFORMIN [Suspect]
     Active Substance: METFORMIN HYDROCHLORIDE
     Indication: Metabolic syndrome
     Route: 065
  3. METFORMIN [Suspect]
     Active Substance: METFORMIN HYDROCHLORIDE
     Indication: Metabolic syndrome
     Route: 065
  4. RISPERIDONE [Suspect]
     Active Substance: RISPERIDONE
     Indication: Abnormal behaviour
     Route: 065

REACTIONS (7)
  - Central obesity [Recovering/Resolving]
  - Blood triglycerides increased [Recovering/Resolving]
  - Abdominal discomfort [Recovering/Resolving]
  - Blood glucose increased [Recovering/Resolving]
  - Metabolic syndrome [Recovering/Resolving]
  - Weight increased [Recovering/Resolving]
  - Therapeutic response decreased [Recovering/Resolving]
